FAERS Safety Report 9653289 (Version 1)
Quarter: 2013Q4

REPORT INFORMATION
  Report Type: Spontaneous
  Country: GB (occurrence: GB)
  Receive Date: 20131029
  Receipt Date: 20131029
  Transmission Date: 20140711
  Serious: Yes (Hospitalization)
  Sender: FDA-Public Use
  Company Number: GB-TEVA-439947ISR

PATIENT
  Age: 82 Year
  Sex: Male
  Weight: 67 kg

DRUGS (17)
  1. RAMIPRIL [Suspect]
     Indication: HYPERTENSION
     Route: 048
     Dates: end: 20130927
  2. RAMIPRIL [Suspect]
     Dosage: EVERY MORNING.
     Route: 048
  3. PEPTAC LIQUID [Concomitant]
     Indication: DYSPEPSIA
     Dosage: 10ML FOUR TIMES DAILY (AFTER MEALS AND NIGHT), AS REQUIRED
     Route: 048
  4. AMOXICILLIN [Concomitant]
     Indication: URINARY TRACT INFECTION
     Dosage: INR CLINIC AWARE
     Route: 048
     Dates: end: 20130808
  5. CLENIL MODULITE [Concomitant]
     Route: 055
  6. BISOPROLOL [Concomitant]
     Dosage: EVERY MORNING.
     Route: 048
  7. BUMETANIDE [Concomitant]
     Dosage: MORNING AND EVENING.
     Route: 048
  8. CODEINE PHOSPHATE [Concomitant]
     Indication: PAIN
     Route: 048
  9. DONEPEZIL [Concomitant]
     Dosage: ONE AT NIGHT.
     Route: 048
  10. FERROUS FUMARATE [Concomitant]
     Dosage: MORNING, LUNCHTIME AND EVENING.
     Route: 048
  11. FLUOXETINE [Concomitant]
     Dosage: EVERY MORNING.
     Route: 048
  12. LANSOPRAZOLE [Concomitant]
     Dosage: 30MG EVERY MORNING.
     Route: 048
  13. PARACETAMOL [Concomitant]
     Indication: PAIN
     Dosage: 1GRAM, ORAL, FOUR TIMES A DAY WHEN REQUIRED FOR PAIN.
     Route: 048
  14. SALBUTAMOL [Concomitant]
     Indication: WHEEZING
     Dosage: FOUR TIMES A DAY WHEN REQUIRED FOR WHEEZING.
     Route: 055
  15. SIMVASTATIN [Concomitant]
     Dosage: 40MG AT NIGHT.
     Route: 048
  16. SPIRONOLACTONE [Concomitant]
     Dosage: 25MG EVERY MORNING.
     Route: 048
  17. WARFARIN [Concomitant]
     Indication: ATRIAL FIBRILLATION
     Dosage: 1 MG AND 3MG TABLETS
     Route: 048

REACTIONS (2)
  - Renal failure acute [Recovered/Resolved]
  - Dehydration [Recovered/Resolved]
